FAERS Safety Report 13126958 (Version 1)
Quarter: 2017Q1

REPORT INFORMATION
  Report Type: Spontaneous
  Country: US (occurrence: US)
  Receive Date: 20170118
  Receipt Date: 20170118
  Transmission Date: 20170428
  Serious: Yes (Other)
  Sender: FDA-Public Use
  Company Number: US-ROCHE-1802426

PATIENT
  Sex: Male

DRUGS (1)
  1. RITUXAN [Suspect]
     Active Substance: RITUXIMAB
     Indication: RHEUMATOID ARTHRITIS
     Dosage: 1 GRAM NOW AND THEN 1 GRAM IN 15 DAYS
     Route: 042
     Dates: end: 201603

REACTIONS (5)
  - Insomnia [Unknown]
  - Pruritus [Unknown]
  - Pyrexia [Unknown]
  - Hypersensitivity [Unknown]
  - Dyspnoea [Unknown]
